FAERS Safety Report 23823424 (Version 4)
Quarter: 2024Q4

REPORT INFORMATION
  Report Type: Spontaneous
  Country: US (occurrence: US)
  Receive Date: 20240507
  Receipt Date: 20241121
  Transmission Date: 20250115
  Serious: Yes (Other)
  Sender: NOVARTIS
  Company Number: US-002147023-NVSC2024US095708

PATIENT
  Sex: Female

DRUGS (1)
  1. ENTRESTO [Suspect]
     Active Substance: SACUBITRIL\VALSARTAN
     Indication: Product used for unknown indication
     Dosage: UNK (49MG/51MG)
     Route: 065

REACTIONS (8)
  - Renal vein thrombosis [Unknown]
  - Coronary artery thrombosis [Unknown]
  - Splenic vein thrombosis [Unknown]
  - Atrial fibrillation [Unknown]
  - Ejection fraction decreased [Unknown]
  - Nausea [Unknown]
  - Vomiting [Unknown]
  - COVID-19 [Unknown]
